FAERS Safety Report 4324578-1 (Version None)
Quarter: 2004Q1

REPORT INFORMATION
  Report Type: 
  Country: None (occurrence: None)
  Receive Date: 20040323
  Receipt Date: 20040308
  Transmission Date: 20041129
  Serious: Yes (Other)
  Sender: FDA-Public Use
  Company Number: 2004-DE-01100GD

PATIENT
  Age: 73 Year
  Sex: Male

DRUGS (2)
  1. AZATHIOPRINE [Suspect]
     Indication: IMMUNOSUPPRESSION
     Dosage: 150 MG
  2. INFLIXIMAB (INFLIXIMAB) [Suspect]
     Indication: CROHN'S DISEASE
     Dosage: 5 MG/KG AS 2-H IV INFUSION, 15 INFUSIONS
     Route: 042

REACTIONS (3)
  - HISTOPLASMOSIS [None]
  - LYMPHOID TISSUE HYPERPLASIA [None]
  - SUBMANDIBULAR MASS [None]
